FAERS Safety Report 10034914 (Version 1)
Quarter: 2014Q1

REPORT INFORMATION
  Report Type: Spontaneous
  Country: GB (occurrence: None)
  Receive Date: 20140321
  Receipt Date: 20140321
  Transmission Date: 20141002
  Serious: Yes (Life-Threatening, Other)
  Sender: FDA-Public Use
  Company Number: 2014GB00209

PATIENT
  Age: 60 Year
  Sex: Female

DRUGS (5)
  1. GEMCITABINE [Suspect]
     Indication: LYMPHADENOPATHY
     Dosage: 1G PER M2 ON DAY 1, 8 AND 15 OF A 28 DAY CYCLE
  2. CO-TRIMOXAZOLE [Concomitant]
  3. FLUCONAZOLE [Concomitant]
  4. GRANULOCYTE COLONY STIMULATING FACTOR (G-CSF) [Concomitant]
  5. ACICLOVIR [Concomitant]

REACTIONS (1)
  - Vasculitis [None]
